FAERS Safety Report 9981002 (Version 2)
Quarter: 2014Q1

REPORT INFORMATION
  Report Type: Report from Study
  Country: ES (occurrence: ES)
  Receive Date: 20140307
  Receipt Date: 20140307
  Transmission Date: 20141002
  Serious: Yes (Hospitalization, Other)
  Sender: FDA-Public Use
  Company Number: ES-ROCHE-1300770

PATIENT
  Age: 39 Year
  Sex: Female

DRUGS (11)
  1. PERTUZUMAB [Suspect]
     Indication: BREAST CANCER
     Route: 042
     Dates: start: 20131024, end: 20131024
  2. PERTUZUMAB [Suspect]
     Dosage: MAINTENANCE DOSE
     Route: 042
     Dates: end: 20131113
  3. PERTUZUMAB [Suspect]
     Dosage: THERAPY RESTARTED.
     Route: 042
     Dates: start: 20131127
  4. TRASTUZUMAB [Suspect]
     Indication: BREAST CANCER
     Route: 042
     Dates: start: 20131023, end: 20131023
  5. TRASTUZUMAB [Suspect]
     Dosage: MAINTENANCE DOSE
     Route: 042
     Dates: end: 20131113
  6. TRASTUZUMAB [Suspect]
     Route: 042
     Dates: start: 20131127
  7. DOCETAXEL [Suspect]
     Indication: BREAST CANCER
     Route: 042
     Dates: start: 20131023, end: 20131113
  8. DOCETAXEL [Suspect]
     Route: 042
     Dates: start: 20131127
  9. DEXAMETHASONE [Concomitant]
     Route: 065
     Dates: start: 20131023
  10. LEVOFLOXACIN [Concomitant]
     Route: 065
     Dates: start: 20131120, end: 20131127
  11. ONDANSETRON [Concomitant]
     Route: 065
     Dates: start: 20131023

REACTIONS (2)
  - Oesophagitis [Recovered/Resolved]
  - Mucosal inflammation [Recovered/Resolved]
